FAERS Safety Report 4628037-8 (Version None)
Quarter: 2005Q2

REPORT INFORMATION
  Report Type: 
  Country: None (occurrence: None)
  Receive Date: 20050406
  Receipt Date: 20040615
  Transmission Date: 20051028
  Serious: Yes (Life-Threatening, Hospitalization, Disabling)
  Sender: FDA-Public Use
  Company Number: US-MERCK-0406USA01535

PATIENT
  Age: 70 Year
  Sex: Male

DRUGS (3)
  1. VIOXX [Suspect]
     Indication: RHEUMATOID ARTHRITIS
     Route: 048
     Dates: start: 20040501, end: 20040501
  2. VIOXX [Suspect]
     Indication: PAIN
     Route: 048
     Dates: start: 20040501, end: 20040501
  3. DILTIAZEM MSD [Concomitant]
     Route: 065

REACTIONS (12)
  - BLOOD PRESSURE FLUCTUATION [None]
  - BLOOD PRESSURE INADEQUATELY CONTROLLED [None]
  - CARDIAC FAILURE [None]
  - EPISTAXIS [None]
  - HYPERSENSITIVITY [None]
  - INFLUENZA LIKE ILLNESS [None]
  - MYOCARDIAL INFARCTION [None]
  - PHARYNGOLARYNGEAL PAIN [None]
  - PNEUMONIA [None]
  - RASH ERYTHEMATOUS [None]
  - RASH PRURITIC [None]
  - RENAL DISORDER [None]
